FAERS Safety Report 9974154 (Version 1)
Quarter: 2014Q1

REPORT INFORMATION
  Report Type: Spontaneous
  Country: FR (occurrence: FR)
  Receive Date: 20140306
  Receipt Date: 20140306
  Transmission Date: 20141002
  Serious: Yes (Death, Hospitalization)
  Sender: FDA-Public Use
  Company Number: FR-GLAXOSMITHKLINE-B0971730A

PATIENT
  Age: 66 Year
  Sex: Male

DRUGS (17)
  1. ZELITREX [Suspect]
     Dosage: 500MG TWICE PER DAY
     Route: 048
     Dates: start: 20131228, end: 20140109
  2. TRILEPTAL [Suspect]
     Indication: CONVULSION
     Dosage: 300MG TWICE PER DAY
     Route: 048
     Dates: start: 20131214, end: 20140109
  3. KEPPRA [Suspect]
     Indication: CONVULSION
     Dosage: 500MG TWICE PER DAY
     Route: 042
     Dates: start: 20131214, end: 20131227
  4. KEPPRA [Suspect]
     Indication: CONVULSION
     Dosage: 500MG TWICE PER DAY
     Route: 048
     Dates: start: 20131227, end: 20140112
  5. ROCEPHINE [Suspect]
     Indication: SEPSIS
     Dosage: 1G PER DAY
     Route: 042
     Dates: start: 20131227, end: 20140108
  6. OFLOCET [Suspect]
     Indication: SEPSIS
     Dosage: 200MG TWICE PER DAY
     Route: 048
     Dates: start: 20131224, end: 20140109
  7. URBANYL [Suspect]
     Indication: CONVULSION
     Dosage: 25MG PER DAY
     Route: 048
     Dates: start: 20131219, end: 20140112
  8. MOPRAL [Suspect]
     Indication: PRODUCT USED FOR UNKNOWN INDICATION
     Dosage: 20MG PER DAY
     Route: 048
     Dates: start: 20131221, end: 20140112
  9. AUGMENTIN [Concomitant]
     Indication: SEPSIS
     Dosage: 1G THREE TIMES PER DAY
     Route: 042
     Dates: start: 20131222, end: 20131227
  10. RADIOTHERAPY [Concomitant]
     Indication: HEAD AND NECK CANCER METASTATIC
     Dosage: 2GY FIVE TIMES PER WEEK
     Route: 065
     Dates: start: 20131118, end: 20140106
  11. PHENYTOIN [Concomitant]
     Indication: CONVULSION
     Route: 065
     Dates: start: 20131212
  12. RIVOTRIL [Concomitant]
     Indication: CONVULSION
     Dates: start: 20131213, end: 20131220
  13. SOLUMEDROL [Concomitant]
     Dosage: 120MG SEE DOSAGE TEXT
     Route: 065
     Dates: start: 20131213, end: 20140109
  14. SOLUPRED [Concomitant]
     Route: 065
     Dates: start: 20140109
  15. CETUXIMAB [Concomitant]
     Indication: HEAD AND NECK CANCER METASTATIC
     Route: 065
     Dates: start: 20131031, end: 20131206
  16. ATROVENT [Concomitant]
     Route: 065
     Dates: start: 20131219, end: 20140109
  17. BRICANYL [Concomitant]
     Route: 065
     Dates: start: 20131219, end: 20140109

REACTIONS (5)
  - Toxic epidermal necrolysis [Fatal]
  - Dermatitis exfoliative [Not Recovered/Not Resolved]
  - Skin disorder [Not Recovered/Not Resolved]
  - Sepsis [Not Recovered/Not Resolved]
  - Bronchial obstruction [Not Recovered/Not Resolved]
